FAERS Safety Report 5151963-0 (Version None)
Quarter: 2006Q4

REPORT INFORMATION
  Report Type: 
  Country: None (occurrence: None)
  Receive Date: 20061109
  Receipt Date: 20061031
  Transmission Date: 20070319
  Serious: Yes (Other)
  Sender: FDA-Public Use
  Company Number: 2006134048

PATIENT
  Age: 74 Year
  Sex: Male

DRUGS (2)
  1. ATORVASTATIN CALCIUM [Suspect]
     Dosage: 80 MG (1 IN 1 D)
  2. PREVISCAN          (FLUINDIONE) [Suspect]
     Indication: ANTICOAGULANT THERAPY

REACTIONS (4)
  - HAEMARTHROSIS [None]
  - HAEMATOMA [None]
  - INTERNATIONAL NORMALISED RATIO INCREASED [None]
  - OVERDOSE [None]
